FAERS Safety Report 12408637 (Version 2)
Quarter: 2016Q2

REPORT INFORMATION
  Report Type: Report from Study
  Country: CL (occurrence: CL)
  Receive Date: 20160526
  Receipt Date: 20160531
  Transmission Date: 20160815
  Serious: Yes (Hospitalization)
  Sender: FDA-Public Use
  Company Number: CL-BIOGEN-2016BI00241673

PATIENT
  Age: 26 Year
  Sex: Female

DRUGS (1)
  1. AVONEX [Suspect]
     Active Substance: INTERFERON BETA-1A
     Indication: MULTIPLE SCLEROSIS
     Route: 030
     Dates: start: 20141212

REACTIONS (2)
  - Balance disorder [Unknown]
  - Monoparesis [Unknown]

NARRATIVE: CASE EVENT DATE: 20160404
